FAERS Safety Report 5088980-5 (Version None)
Quarter: 2006Q3

REPORT INFORMATION
  Report Type: 
  Country: None (occurrence: None)
  Receive Date: 20060825
  Receipt Date: 20060329
  Transmission Date: 20061208
  Serious: Yes (Other)
  Sender: FDA-Public Use
  Company Number: PHEH2006US04181

PATIENT
  Age: 78 Year
  Sex: Male

DRUGS (2)
  1. ZOMETA [Suspect]
     Indication: MULTIPLE MYELOMA
     Dosage: 4 (UNSPECIFIED), EVERY 4 (UNSPECIFIED)
     Dates: start: 20040617, end: 20060220
  2. CORTICOSTEROID NOS [Concomitant]

REACTIONS (12)
  - BONE DISORDER [None]
  - DENTAL CARIES [None]
  - FISTULA [None]
  - ORAL SOFT TISSUE DISORDER [None]
  - OSTEOMYELITIS [None]
  - OSTEONECROSIS [None]
  - PAIN [None]
  - PAIN IN JAW [None]
  - PURULENCE [None]
  - SWELLING [None]
  - TOOTH EXTRACTION [None]
  - WOUND TREATMENT [None]
